FAERS Safety Report 10333494 (Version 3)
Quarter: 2014Q3

REPORT INFORMATION
  Report Type: Report from Study
  Country: US (occurrence: US)
  Receive Date: 20140722
  Receipt Date: 20140724
  Transmission Date: 20150326
  Serious: No
  Sender: FDA-Public Use
  Company Number: US-009507513-1406USA013517

PATIENT
  Age: 52 Year
  Sex: Female

DRUGS (1)
  1. MK-3475 [Suspect]
     Active Substance: PEMBROLIZUMAB
     Indication: METASTATIC MALIGNANT MELANOMA
     Dosage: 2 MG/KG, Q21D, TOTAL DAILY DOSE: 149MG
     Route: 042
     Dates: start: 20140514

REACTIONS (3)
  - Diarrhoea [Recovering/Resolving]
  - Arthralgia [Not Recovered/Not Resolved]
  - Headache [Not Recovered/Not Resolved]

NARRATIVE: CASE EVENT DATE: 20140604
